FAERS Safety Report 13426076 (Version 2)
Quarter: 2017Q3

REPORT INFORMATION
  Report Type: Spontaneous
  Country: US (occurrence: US)
  Receive Date: 20170411
  Receipt Date: 20170913
  Transmission Date: 20171127
  Serious: No
  Sender: FDA-Public Use
  Company Number: US-JNJFOC-20170307532

PATIENT
  Age: 40 Year
  Sex: Male

DRUGS (9)
  1. METHOTREXATE. [Concomitant]
     Active Substance: METHOTREXATE
     Indication: RHEUMATOID ARTHRITIS
     Route: 065
     Dates: start: 2010
  2. METHOTREXATE. [Concomitant]
     Active Substance: METHOTREXATE
     Indication: RHEUMATOID ARTHRITIS
     Route: 065
     Dates: start: 201009
  3. TRAMADOL. [Concomitant]
     Active Substance: TRAMADOL
     Indication: RHEUMATOID ARTHRITIS
     Route: 065
  4. PREDNISONE. [Concomitant]
     Active Substance: PREDNISONE
     Indication: RHEUMATOID ARTHRITIS
     Route: 065
     Dates: start: 2010
  5. XELJANZ [Concomitant]
     Active Substance: TOFACITINIB CITRATE
     Route: 065
     Dates: start: 201401, end: 201701
  6. FOLIC ACID. [Concomitant]
     Active Substance: FOLIC ACID
     Indication: PROPHYLAXIS
     Route: 065
  7. SIMPONI ARIA [Suspect]
     Active Substance: GOLIMUMAB
     Indication: RHEUMATOID ARTHRITIS
     Route: 042
  8. SIMPONI ARIA [Suspect]
     Active Substance: GOLIMUMAB
     Indication: RHEUMATOID ARTHRITIS
     Route: 042
     Dates: end: 20170306
  9. SIMPONI ARIA [Suspect]
     Active Substance: GOLIMUMAB
     Indication: RHEUMATOID ARTHRITIS
     Dosage: 2 MG/KG
     Route: 042
     Dates: start: 201612

REACTIONS (3)
  - Underdose [Unknown]
  - Drug effect decreased [Unknown]
  - Inappropriate schedule of drug administration [Unknown]

NARRATIVE: CASE EVENT DATE: 20170220
